FAERS Safety Report 5664616-7 (Version None)
Quarter: 2008Q1

REPORT INFORMATION
  Report Type: 
  Country: None (occurrence: None)
  Receive Date: 20080314
  Receipt Date: 20080310
  Transmission Date: 20080703
  Serious: Yes (Other)
  Sender: FDA-Public Use
  Company Number: US-ASTRAZENECA-2008UW04918

PATIENT
  Age: 17652 Day
  Sex: Female

DRUGS (1)
  1. CRESTOR [Suspect]
     Indication: CARDIAC DISORDER
     Route: 048
     Dates: start: 20080303

REACTIONS (2)
  - BACK PAIN [None]
  - MYALGIA [None]
